FAERS Safety Report 8257296-8 (Version None)
Quarter: 2012Q2

REPORT INFORMATION
  Report Type: 
  Country: None (occurrence: None)
  Receive Date: 20120403
  Receipt Date: 20120327
  Transmission Date: 20120825
  Serious: Yes (Hospitalization)
  Sender: FDA-Public Use
  Company Number: US-TEVA-331229USA

PATIENT
  Sex: Female
  Weight: 55.388 kg

DRUGS (3)
  1. PROVIGIL [Suspect]
     Indication: FIBROMYALGIA
     Dosage: 200 MILLIGRAM;
     Route: 048
     Dates: start: 20060101, end: 20111201
  2. PROVIGIL [Suspect]
     Indication: FATIGUE
  3. HYDROCODONE [Concomitant]

REACTIONS (1)
  - MYOCARDIAL INFARCTION [None]
